FAERS Safety Report 12092782 (Version 1)
Quarter: 2016Q1

REPORT INFORMATION
  Report Type: Spontaneous
  Country: BR (occurrence: BR)
  Receive Date: 20160219
  Receipt Date: 20160219
  Transmission Date: 20160526
  Serious: Yes (Life-Threatening)
  Sender: FDA-Public Use
  Company Number: BR-FRESENIUS KABI-FK201600860

PATIENT

DRUGS (5)
  1. INDOMETHACIN (MANUFACTURER UNKNOWN) [Suspect]
     Active Substance: INDOMETHACIN
     Indication: BACK PAIN
     Route: 064
  2. SODIUM DICLOFENAC [Suspect]
     Active Substance: DICLOFENAC SODIUM
     Indication: POLYHYDRAMNIOS
  3. SODIUM DICLOFENAC [Suspect]
     Active Substance: DICLOFENAC SODIUM
     Indication: BACK PAIN
     Route: 064
  4. CAFFEINE. [Suspect]
     Active Substance: CAFFEINE
     Indication: ANALGESIC THERAPY
     Route: 064
  5. INDOMETHACIN (MANUFACTURER UNKNOWN) [Suspect]
     Active Substance: INDOMETHACIN
     Indication: POLYHYDRAMNIOS

REACTIONS (3)
  - Foetal exposure during pregnancy [Not Recovered/Not Resolved]
  - Off label use [Not Recovered/Not Resolved]
  - Ductus arteriosus stenosis foetal [Not Recovered/Not Resolved]
